FAERS Safety Report 21087804 (Version 1)
Quarter: 2022Q3

REPORT INFORMATION
  Report Type: Spontaneous
  Country: JP (occurrence: JP)
  Receive Date: 20220715
  Receipt Date: 20220715
  Transmission Date: 20221026
  Serious: Yes (Other)
  Sender: FDA-Public Use
  Company Number: JP-ViiV Healthcare Limited-JP2022JPN076605

PATIENT

DRUGS (4)
  1. DOVATO [Suspect]
     Active Substance: DOLUTEGRAVIR SODIUM\LAMIVUDINE
     Indication: HIV infection
     Dosage: UNK
     Dates: start: 202204
  2. VALIXA (VALGANCICLOVIR HYDROCHLORIDE) [Concomitant]
     Dosage: UNK
  3. AZITHROMYCIN [Concomitant]
     Active Substance: AZITHROMYCIN
     Dosage: UNK
  4. SULFAMETHOXAZOLE + TRIMETHOPRIM COMBINATION DRUG [Concomitant]

REACTIONS (3)
  - Platelet count decreased [Not Recovered/Not Resolved]
  - Immune reconstitution inflammatory syndrome [Unknown]
  - HIV-associated neurocognitive disorder [Recovering/Resolving]

NARRATIVE: CASE EVENT DATE: 20220401
